FAERS Safety Report 5765638-8 (Version None)
Quarter: 2008Q2

REPORT INFORMATION
  Report Type: 
  Country: None (occurrence: None)
  Receive Date: 20080611
  Receipt Date: 20080605
  Transmission Date: 20081010
  Serious: Yes (Other)
  Sender: FDA-Public Use
  Company Number: US-ASTRAZENECA-2006UW11538

PATIENT
  Age: 672 Month
  Sex: Female
  Weight: 80.9 kg

DRUGS (5)
  1. SEROQUEL [Suspect]
     Indication: DEPRESSION
     Route: 048
     Dates: start: 20040301, end: 20040601
  2. SEROQUEL [Suspect]
     Indication: SCHIZOPHRENIA
     Route: 048
     Dates: start: 20040301, end: 20040601
  3. HALDOL [Concomitant]
     Route: 048
     Dates: start: 20020901
  4. RISPERDAL [Concomitant]
     Route: 048
     Dates: start: 20050701
  5. ZYPREXA [Concomitant]
     Route: 048

REACTIONS (3)
  - HYPERGLYCAEMIA [None]
  - MULTIPLE FRACTURES [None]
  - OPEN WOUND [None]
